FAERS Safety Report 16666117 (Version 1)
Quarter: 2019Q3

REPORT INFORMATION
  Report Type: Other
  Country: BG (occurrence: BG)
  Receive Date: 20190805
  Receipt Date: 20190805
  Transmission Date: 20191004
  Serious: Yes (Other)
  Sender: FDA-Public Use
  Company Number: BG-DEXPHARM-20190594

PATIENT
  Age: 67 Year
  Sex: Female

DRUGS (3)
  1. METHYLPREDNISOLONE. [Concomitant]
     Active Substance: METHYLPREDNISOLONE
     Dosage: DAILY DOSE: 8 MG MILLGRAM(S) EVERY DAYS
  2. OMEPRAZOLE. [Suspect]
     Active Substance: OMEPRAZOLE
     Indication: PROPHYLAXIS
     Dosage: DAILY DOSE: 20 MG MILLGRAM(S) EVERY DAYS
  3. HYDROXYCHLOROQUINE [Concomitant]
     Active Substance: HYDROXYCHLOROQUINE
     Dosage: DAILY DOSE: 200 MG MILLGRAM(S) EVERY DAYS

REACTIONS (1)
  - Systemic lupus erythematosus [Recovering/Resolving]
